FAERS Safety Report 20945501 (Version 6)
Quarter: 2023Q1

REPORT INFORMATION
  Report Type: Spontaneous
  Country: CA (occurrence: CA)
  Receive Date: 20220610
  Receipt Date: 20230209
  Transmission Date: 20230418
  Serious: Yes (Other)
  Sender: FDA-Public Use
  Company Number: CA-PFIZER INC-202200725410

PATIENT
  Age: 54 Year
  Sex: Female

DRUGS (7)
  1. LORBRENA [Suspect]
     Active Substance: LORLATINIB
     Dosage: 100 MG, DAILY
     Route: 048
     Dates: start: 20220420, end: 2022
  2. LORBRENA [Suspect]
     Active Substance: LORLATINIB
     Dosage: 75 MG, 1X/DAY
     Route: 048
     Dates: start: 2022, end: 20220606
  3. LORBRENA [Suspect]
     Active Substance: LORLATINIB
     Dosage: 25 MG, DAILY (3 REPEATS)
     Route: 048
  4. LORBRENA [Suspect]
     Active Substance: LORLATINIB
     Dosage: DAILY; ALTERNATE DOSE OF 25MG AND 50 MG
     Route: 048
  5. LORBRENA [Suspect]
     Active Substance: LORLATINIB
     Dosage: 50 MG, DAILY (1 REPEAT)
     Route: 048
  6. LORBRENA [Suspect]
     Active Substance: LORLATINIB
     Dosage: DAILY, INCREASE TO 75 MG  DAILY ALTERNATING WITH 50 MG PO DAILY EVERY OTHER DAY
     Route: 048
     Dates: start: 20230201
  7. LORBRENA [Suspect]
     Active Substance: LORLATINIB
     Dosage: 75 MG, 1X/DAY
     Dates: start: 20230201

REACTIONS (4)
  - Hallucination, visual [Unknown]
  - Hallucination, auditory [Unknown]
  - Off label use [Unknown]
  - Malaise [Unknown]

NARRATIVE: CASE EVENT DATE: 20220101
